FAERS Safety Report 22099320 (Version 2)
Quarter: 2023Q2

REPORT INFORMATION
  Report Type: Spontaneous
  Country: US (occurrence: US)
  Receive Date: 20230315
  Receipt Date: 20230413
  Transmission Date: 20230722
  Serious: Yes (Other)
  Sender: FDA-Public Use
  Company Number: US-Calliditas-2023CAL00219

PATIENT
  Age: 48 Year
  Sex: Female

DRUGS (12)
  1. TARPEYO [Suspect]
     Active Substance: BUDESONIDE
     Indication: IgA nephropathy
     Dosage: 16 MG (4 MG CAPSULES) DAILY
     Route: 048
     Dates: start: 20220819
  2. ENTRESTO [Concomitant]
     Active Substance: SACUBITRIL\VALSARTAN
  3. SYNTHROID [Concomitant]
     Active Substance: LEVOTHYROXINE SODIUM
  4. LIPITOR [Concomitant]
     Active Substance: ATORVASTATIN CALCIUM
  5. PRAZOSIN [Concomitant]
     Active Substance: PRAZOSIN
  6. ABILIFY [Concomitant]
     Active Substance: ARIPIPRAZOLE
  7. DOXYCYCLINE [Concomitant]
     Active Substance: DOXYCYCLINE
     Indication: Staphylococcal sepsis
  8. KEFLEX [Concomitant]
     Active Substance: CEPHALEXIN
  9. OMEPRAZOLE [Concomitant]
     Active Substance: OMEPRAZOLE
  10. LASIX [Concomitant]
     Active Substance: FUROSEMIDE
  11. OXYBUTYNIN [Concomitant]
     Active Substance: OXYBUTYNIN
  12. LEXAPRO [Concomitant]
     Active Substance: ESCITALOPRAM OXALATE

REACTIONS (1)
  - Arthritis infective [Recovered/Resolved]
